FAERS Safety Report 8913168 (Version 4)
Quarter: 2014Q2

REPORT INFORMATION
  Report Type: Report from Study
  Country: DE (occurrence: DE)
  Receive Date: 20121116
  Receipt Date: 20140627
  Transmission Date: 20141212
  Serious: Yes (Death, Hospitalization)
  Sender: FDA-Public Use
  Company Number: DE-BAYER-2012-107846

PATIENT
  Sex: Male
  Weight: 125 kg

DRUGS (4)
  1. REGORAFENIB [Suspect]
     Indication: COLORECTAL CANCER METASTATIC
     Dosage: 40 MG, TID
     Route: 048
     Dates: start: 20120831, end: 20120920
  2. REGORAFENIB [Suspect]
     Indication: COLORECTAL CANCER METASTATIC
     Dosage: UNK
     Route: 048
     Dates: start: 20120928, end: 20121012
  3. NOVALGIN [Concomitant]
     Indication: WOUND INFECTION
  4. TAZOBACTAM [Concomitant]
     Indication: WOUND INFECTION
     Dosage: UNK
     Route: 042
     Dates: start: 20121013, end: 20121018

REACTIONS (1)
  - Asthenia [Fatal]
